FAERS Safety Report 13854861 (Version 1)
Quarter: 2017Q3

REPORT INFORMATION
  Report Type: Spontaneous
  Country: US (occurrence: US)
  Receive Date: 20170810
  Receipt Date: 20170810
  Transmission Date: 20171127
  Serious: Yes (Other)
  Sender: FDA-Public Use
  Company Number: US-SUN PHARMACEUTICAL INDUSTRIES LTD-2017US-147308

PATIENT
  Sex: Female

DRUGS (1)
  1. BUPRENORPHINE. [Suspect]
     Active Substance: BUPRENORPHINE
     Indication: PRODUCT USED FOR UNKNOWN INDICATION
     Dosage: UNK
     Route: 060

REACTIONS (8)
  - Nausea [Unknown]
  - Depression [Unknown]
  - Therapeutic response decreased [Unknown]
  - Muscle spasms [Unknown]
  - Abdominal discomfort [Unknown]
  - Fatigue [Unknown]
  - Oral discomfort [Unknown]
  - Asthenia [Unknown]
